FAERS Safety Report 9637353 (Version 1)
Quarter: 2013Q4

REPORT INFORMATION
  Report Type: Spontaneous
  Country: GB (occurrence: GB)
  Receive Date: 20131022
  Receipt Date: 20131022
  Transmission Date: 20140711
  Serious: Yes (Hospitalization)
  Sender: FDA-Public Use
  Company Number: GB-ASTRAZENECA-2013SE76066

PATIENT
  Sex: Female

DRUGS (1)
  1. LOSEC [Suspect]
     Route: 048

REACTIONS (1)
  - Short-bowel syndrome [Unknown]
